FAERS Safety Report 19096358 (Version 1)
Quarter: 2021Q2

REPORT INFORMATION
  Report Type: Spontaneous
  Country: QZ (occurrence: QZ)
  Receive Date: 20210405
  Receipt Date: 20210405
  Transmission Date: 20210717
  Serious: Yes (Other)
  Sender: FDA-Public Use
  Company Number: None

PATIENT
  Age: 22 Week
  Sex: Female
  Weight: 94.5 kg

DRUGS (6)
  1. SCOPOLAMINE TRANDERMAL SYSTEM [Suspect]
     Active Substance: SCOPOLAMINE
     Indication: VERTIGO
     Dosage: ?          OTHER STRENGTH:PATCH;QUANTITY:4 PATCH(ES);OTHER FREQUENCY:1 PATCH ONTO SKIN;?
     Route: 062
     Dates: start: 20210401, end: 20210405
  2. MOTRIN [Concomitant]
     Active Substance: IBUPROFEN
  3. BACTRIUM [Concomitant]
  4. SUMATRIPTAN. [Concomitant]
     Active Substance: SUMATRIPTAN
  5. MECLIZINE [Concomitant]
     Active Substance: MECLIZINE HYDROCHLORIDE
  6. ONDANSETRON [Concomitant]
     Active Substance: ONDANSETRON

REACTIONS (4)
  - Vision blurred [None]
  - Confusional state [None]
  - Dizziness [None]
  - Dysarthria [None]

NARRATIVE: CASE EVENT DATE: 20210403
